FAERS Safety Report 8235671-5 (Version None)
Quarter: 2012Q1

REPORT INFORMATION
  Report Type: 
  Country: None (occurrence: None)
  Receive Date: 20120326
  Receipt Date: 20120319
  Transmission Date: 20120608
  Serious: Yes (Other)
  Sender: FDA-Public Use
  Company Number: US-US-EMD SERONO, INC.-7120691

PATIENT
  Sex: Female
  Weight: 91 kg

DRUGS (1)
  1. REBIF [Suspect]
     Indication: PRODUCT USED FOR UNKNOWN INDICATION
     Route: 058
     Dates: start: 20110718

REACTIONS (5)
  - VISUAL IMPAIRMENT [None]
  - INJECTION SITE RASH [None]
  - RETINAL DISORDER [None]
  - CONTUSION [None]
  - DIPLOPIA [None]
